FAERS Safety Report 25538795 (Version 2)
Quarter: 2025Q3

REPORT INFORMATION
  Report Type: Spontaneous
  Country: US (occurrence: US)
  Receive Date: 20250710
  Receipt Date: 20250922
  Transmission Date: 20251020
  Serious: No
  Sender: SANOFI AVENTIS
  Company Number: US-SA-2025SA194506

PATIENT
  Age: 57 Year
  Sex: Female

DRUGS (2)
  1. DUPIXENT [Suspect]
     Active Substance: DUPILUMAB
     Indication: Dermatitis atopic
     Route: 058
     Dates: start: 20250309, end: 20250309
  2. DUPIXENT [Suspect]
     Active Substance: DUPILUMAB
     Dosage: 300 MG, QOW
     Route: 058
     Dates: start: 20250324

REACTIONS (6)
  - Nasopharyngitis [Unknown]
  - Cough [Recovered/Resolved]
  - Pruritus [Not Recovered/Not Resolved]
  - Skin tightness [Not Recovered/Not Resolved]
  - Skin burning sensation [Unknown]
  - Stress [Unknown]

NARRATIVE: CASE EVENT DATE: 20250101
